FAERS Safety Report 18876105 (Version 1)
Quarter: 2021Q1

REPORT INFORMATION
  Report Type: Spontaneous
  Country: US (occurrence: US)
  Receive Date: 20210210
  Receipt Date: 20210210
  Transmission Date: 20210420
  Serious: Yes (Hospitalization)
  Sender: FDA-Public Use
  Company Number: US-ELI_LILLY_AND_COMPANY-US202102001164

PATIENT
  Age: 56 Year
  Sex: Female

DRUGS (5)
  1. HUMALOG KWIKPEN [Suspect]
     Active Substance: INSULIN LISPRO
     Indication: DIABETES MELLITUS
     Dosage: 30 U, OTHER (WITH EVERY MEAL)
     Route: 058
     Dates: start: 200601
  2. HUMALOG KWIKPEN [Suspect]
     Active Substance: INSULIN LISPRO
     Indication: DIABETES MELLITUS
     Dosage: 30 U, OTHER (WITH EVERY MEAL)
     Route: 058
     Dates: start: 200601
  3. HUMALOG KWIKPEN [Suspect]
     Active Substance: INSULIN LISPRO
     Dosage: 30 U, OTHER (WITH EVERY MEAL)
     Route: 058
  4. TOUJEO [Concomitant]
     Active Substance: INSULIN GLARGINE
     Indication: DIABETES MELLITUS
     Dosage: 80 U, EACH EVENING (AT NIGHT)
  5. HUMALOG KWIKPEN [Suspect]
     Active Substance: INSULIN LISPRO
     Dosage: 30 U, OTHER (WITH EVERY MEAL)
     Route: 058

REACTIONS (10)
  - Limb injury [Unknown]
  - Hyperkeratosis [Unknown]
  - Skin ulcer [Unknown]
  - Cellulitis [Unknown]
  - Diabetic foot [Unknown]
  - Diabetic foot infection [Unknown]
  - Staphylococcal infection [Unknown]
  - Ulcer [Unknown]
  - Memory impairment [Unknown]
  - Osteomyelitis [Unknown]

NARRATIVE: CASE EVENT DATE: 200701
